FAERS Safety Report 8145087-8 (Version None)
Quarter: 2012Q1

REPORT INFORMATION
  Report Type: 
  Country: None (occurrence: None)
  Receive Date: 20120217
  Receipt Date: 20120213
  Transmission Date: 20120608
  Serious: Yes (Death, Hospitalization)
  Sender: FDA-Public Use
  Company Number: PHHY2011DE70600

PATIENT
  Sex: Female
  Weight: 62 kg

DRUGS (3)
  1. CARBOPLATIN [Concomitant]
  2. ETOPOSIDE [Concomitant]
  3. SANDOSTATIN LAR [Suspect]
     Indication: PANCREATIC NEUROENDOCRINE TUMOUR
     Dosage: 20 MG / MONTH
     Dates: start: 20110119

REACTIONS (4)
  - HEPATIC FAILURE [None]
  - THROMBOCYTOPENIA [None]
  - LEUKOPENIA [None]
  - GENERAL PHYSICAL HEALTH DETERIORATION [None]
